FAERS Safety Report 5465544-2 (Version None)
Quarter: 2007Q3

REPORT INFORMATION
  Report Type: 
  Country: None (occurrence: None)
  Receive Date: 20070924
  Receipt Date: 19980123
  Transmission Date: 20080115
  Serious: Yes (Hospitalization)
  Sender: FDA-Public Use
  Company Number: FR-PFIZER INC-2006118257

PATIENT
  Sex: Male

DRUGS (11)
  1. IRINOTECAN HCL [Suspect]
     Indication: COLORECTAL CANCER METASTATIC
     Dosage: DAILY DOSE:700MG
     Route: 042
     Dates: start: 19971223, end: 19971223
  2. ATROPINE [Concomitant]
     Dates: start: 19971223, end: 19971223
  3. COZAAR [Concomitant]
     Dates: start: 19900101
  4. LOPERAMIDE HCL [Concomitant]
     Dates: start: 19971230, end: 19980108
  5. KYTRIL [Concomitant]
     Dates: start: 19971223, end: 19971223
  6. MUCOMYST [Concomitant]
     Dates: start: 19980102, end: 19980107
  7. PLITICAN [Concomitant]
     Dates: start: 19971223, end: 19971223
  8. PRIMPERAN [Concomitant]
     Dates: start: 19971224, end: 19980102
  9. SMECTITE [Concomitant]
     Dates: start: 19980102, end: 19980107
  10. SOLU-MEDROL [Concomitant]
     Dates: start: 19971223, end: 19971223
  11. TIORFAN [Concomitant]
     Dates: start: 19980103, end: 19980106

REACTIONS (1)
  - HAEMOPTYSIS [None]
